FAERS Safety Report 7184642-9 (Version None)
Quarter: 2010Q4

REPORT INFORMATION
  Report Type: 
  Country: None (occurrence: None)
  Receive Date: 20101222
  Receipt Date: 20101208
  Transmission Date: 20110411
  Serious: Yes (Hospitalization)
  Sender: FDA-Public Use
  Company Number: GXKR2010BR13958

PATIENT
  Sex: Female

DRUGS (4)
  1. BINKO (NGX) [Suspect]
     Indication: SENSATION OF BLOOD FLOW
     Dosage: 80 MG, QD
     Route: 048
  2. SINVASTACOR (NGX) [Suspect]
     Indication: BLOOD CHOLESTEROL
     Dosage: 20 MG, QD
     Route: 048
  3. NAPRIX [Concomitant]
     Dosage: 10 MG, QD
     Route: 048
  4. AMLODIPINE BESYLATE AND VALSARTAN [Concomitant]
     Route: 048

REACTIONS (6)
  - ABASIA [None]
  - DYSSTASIA [None]
  - FEELING ABNORMAL [None]
  - OSTEOARTHRITIS [None]
  - PAIN [None]
  - SENSORY LOSS [None]
